FAERS Safety Report 12707662 (Version 6)
Quarter: 2016Q4

REPORT INFORMATION
  Report Type: Spontaneous
  Country: GB (occurrence: GB)
  Receive Date: 20160901
  Receipt Date: 20161122
  Transmission Date: 20170207
  Serious: Yes (Other)
  Sender: FDA-Public Use
  Company Number: GB-REGENERON PHARMACEUTICALS, INC.-2016-21111

PATIENT

DRUGS (2)
  1. EYLEA [Suspect]
     Active Substance: AFLIBERCEPT
     Dosage: 0.05 ML, ONCE
     Route: 031
     Dates: start: 20160803, end: 20160803
  2. EYLEA [Suspect]
     Active Substance: AFLIBERCEPT
     Indication: NEOVASCULAR AGE-RELATED MACULAR DEGENERATION
     Dosage: UNKNOWN NUMBER OF EYLEA INJECTIONS
     Route: 031

REACTIONS (5)
  - Visual acuity reduced [Unknown]
  - Vitritis [Unknown]
  - Multiple use of single-use product [Unknown]
  - Eye oedema [Recovering/Resolving]
  - Vitreous disorder [Recovering/Resolving]
